FAERS Safety Report 8223997-0 (Version None)
Quarter: 2012Q1

REPORT INFORMATION
  Report Type: 
  Country: None (occurrence: None)
  Receive Date: 20120321
  Receipt Date: 20120314
  Transmission Date: 20120608
  Serious: Yes (Hospitalization, Other)
  Sender: FDA-Public Use
  Company Number: PHEH2012US005961

PATIENT
  Sex: Female

DRUGS (4)
  1. ZOMETA [Suspect]
     Indication: OSTEOPOROSIS
     Route: 042
     Dates: start: 20060601, end: 20100801
  2. FOSAMAX [Suspect]
     Indication: OSTEOPOROSIS
     Dosage: UNK
     Dates: end: 20060101
  3. FOSAMAX [Suspect]
     Indication: BONE DISORDER
  4. ZOMETA [Suspect]
     Indication: BONE DISORDER

REACTIONS (10)
  - FEAR [None]
  - LOW TURNOVER OSTEOPATHY [None]
  - BONE DISORDER [None]
  - MULTIPLE FRACTURES [None]
  - FEMUR FRACTURE [None]
  - ANXIETY [None]
  - ANHEDONIA [None]
  - INJURY [None]
  - PAIN [None]
  - EMOTIONAL DISTRESS [None]
